FAERS Safety Report 11110905 (Version 1)
Quarter: 2015Q2

REPORT INFORMATION
  Report Type: Spontaneous
  Country: CA (occurrence: CA)
  Receive Date: 20150513
  Receipt Date: 20150513
  Transmission Date: 20150821
  Serious: Yes (Other)
  Sender: FDA-Public Use
  Company Number: CA-SHIRE-CA201501496

PATIENT
  Age: 9 Year
  Sex: Male
  Weight: 25.6 kg

DRUGS (3)
  1. INTUNIV [Suspect]
     Active Substance: GUANFACINE HYDROCHLORIDE
     Indication: ANXIETY
     Dosage: 1 MG, 1X/DAY:QD
     Route: 048
     Dates: start: 20150117, end: 20150120
  2. INTUNIV [Suspect]
     Active Substance: GUANFACINE HYDROCHLORIDE
     Indication: ATTENTION DEFICIT/HYPERACTIVITY DISORDER
     Dosage: 2 MG, 1X/DAY:QD (AM)
     Route: 048
     Dates: start: 20150117, end: 20150117
  3. INTUNIV [Suspect]
     Active Substance: GUANFACINE HYDROCHLORIDE
     Indication: TIC
     Dosage: 1 MG, 1X/DAY:QD
     Route: 048
     Dates: start: 20141031, end: 20150116

REACTIONS (11)
  - Dyspnoea [Recovered/Resolved]
  - Fall [Recovered/Resolved]
  - Anger [Recovered/Resolved]
  - Disorientation [Recovered/Resolved]
  - Cyanosis [Recovered/Resolved]
  - Hallucination [Recovered/Resolved]
  - Irritability [Recovered/Resolved]
  - Tearfulness [Recovered/Resolved]
  - Drug ineffective [Unknown]
  - Panic attack [Recovered/Resolved]
  - Hyperventilation [Recovered/Resolved]

NARRATIVE: CASE EVENT DATE: 20141031
